FAERS Safety Report 11343924 (Version 3)
Quarter: 2015Q4

REPORT INFORMATION
  Report Type: Spontaneous
  Country: US (occurrence: US)
  Receive Date: 20150806
  Receipt Date: 20151015
  Transmission Date: 20160304
  Serious: Yes (Death, Hospitalization)
  Sender: FDA-Public Use
  Company Number: US-PFIZER INC-2015248584

PATIENT
  Age: 32 Year
  Sex: Female
  Weight: 44 kg

DRUGS (1)
  1. IBRANCE [Suspect]
     Active Substance: PALBOCICLIB
     Indication: BREAST CANCER
     Dosage: 125 MG, (1 CAP D1-D21 Q28D)
     Route: 048
     Dates: start: 20150605

REACTIONS (7)
  - Fatigue [Unknown]
  - Pulmonary thrombosis [Unknown]
  - Swelling [Unknown]
  - Death [Fatal]
  - Breast cancer [Unknown]
  - Liver disorder [Unknown]
  - Disease progression [Unknown]

NARRATIVE: CASE EVENT DATE: 20150722
